FAERS Safety Report 6926892-X (Version None)
Quarter: 2010Q3

REPORT INFORMATION
  Report Type: 
  Country: None (occurrence: None)
  Receive Date: 20100816
  Receipt Date: 20100630
  Transmission Date: 20110219
  Serious: No
  Sender: FDA-Public Use
  Company Number: US-ABBOTT-10P-163-0654517-00

PATIENT
  Sex: Female
  Weight: 88.53 kg

DRUGS (3)
  1. SIMCOR [Suspect]
     Indication: BLOOD CHOLESTEROL INCREASED
     Dates: start: 20100601, end: 20100627
  2. SIMCOR [Suspect]
     Dosage: AT BEDTIME
     Dates: start: 20100627
  3. ASPIRIN [Concomitant]
     Indication: PRODUCT USED FOR UNKNOWN INDICATION
     Dosage: AT BEDTIME

REACTIONS (2)
  - FLUSHING [None]
  - PARAESTHESIA [None]
